FAERS Safety Report 20555041 (Version 1)
Quarter: 2022Q1

REPORT INFORMATION
  Report Type: Spontaneous
  Country: TW (occurrence: None)
  Receive Date: 20220304
  Receipt Date: 20220304
  Transmission Date: 20220424
  Serious: Yes (Hospitalization)
  Sender: FDA-Public Use
  Company Number: TW-ROCHE-3037165

PATIENT
  Age: 62 Year
  Sex: Male
  Weight: 63.6 kg

DRUGS (8)
  1. MABTHERA [Suspect]
     Active Substance: RITUXIMAB
     Indication: Rheumatoid arthritis
     Route: 041
     Dates: start: 20110810, end: 20220218
  2. HYDROXYCHLOROQUINE [Concomitant]
     Active Substance: HYDROXYCHLOROQUINE
     Indication: Rheumatoid arthritis
     Route: 048
  3. CELEBREX [Concomitant]
     Active Substance: CELECOXIB
     Indication: Rheumatoid arthritis
     Route: 048
  4. PREDNISOLONE [Concomitant]
     Active Substance: PREDNISOLONE
     Indication: Rheumatoid arthritis
     Route: 048
  5. SITAGLIPTIN [Concomitant]
     Active Substance: SITAGLIPTIN
     Route: 048
  6. ESTAZOLAM [Concomitant]
     Active Substance: ESTAZOLAM
     Route: 048
  7. PIPERACILLIN SODIUM\TAZOBACTAM SODIUM [Concomitant]
     Active Substance: PIPERACILLIN SODIUM\TAZOBACTAM SODIUM
     Route: 042
     Dates: start: 20220223
  8. ACETYLCYSTEINE [Concomitant]
     Active Substance: ACETYLCYSTEINE
     Route: 048
     Dates: start: 20220223

REACTIONS (2)
  - Pyrexia [Not Recovered/Not Resolved]
  - Productive cough [Not Recovered/Not Resolved]

NARRATIVE: CASE EVENT DATE: 20220220
